FAERS Safety Report 9246895 (Version 2)
Quarter: 2013Q2

REPORT INFORMATION
  Report Type: Spontaneous
  Country: CN (occurrence: CN)
  Receive Date: 20130422
  Receipt Date: 20130510
  Transmission Date: 20140414
  Serious: Yes (Hospitalization)
  Sender: FDA-Public Use
  Company Number: CN-GLAXOSMITHKLINE-B0883658A

PATIENT
  Age: 26 Year
  Sex: Female

DRUGS (2)
  1. LAMICTAL [Suspect]
     Indication: EPILEPSY
     Dosage: 12.5MG PER DAY
     Route: 048
     Dates: start: 201303
  2. ANTICONVULSANTS [Concomitant]

REACTIONS (6)
  - Aphagia [Recovered/Resolved with Sequelae]
  - Dermatitis exfoliative [Recovered/Resolved]
  - Skin lesion [Unknown]
  - Pyrexia [Unknown]
  - Asthenia [Unknown]
  - Scar [Unknown]
